FAERS Safety Report 7793284-3 (Version None)
Quarter: 2011Q3

REPORT INFORMATION
  Report Type: 
  Country: None (occurrence: None)
  Receive Date: 20110929
  Receipt Date: 20110920
  Transmission Date: 20111222
  Serious: Yes (Other)
  Sender: FDA-Public Use
  Company Number: DKLU1073242

PATIENT
  Age: 24 Year
  Sex: Male

DRUGS (1)
  1. DESOXYN [Suspect]
     Indication: DRUG ABUSE

REACTIONS (5)
  - BREATH ODOUR [None]
  - TOOTHACHE [None]
  - DENTAL CARIES [None]
  - DRUG ABUSE [None]
  - POOR DENTAL CONDITION [None]
